FAERS Safety Report 26211756 (Version 1)
Quarter: 2025Q4

REPORT INFORMATION
  Report Type: Other
  Country: EU (occurrence: EU)
  Receive Date: 20251230
  Receipt Date: 20251230
  Transmission Date: 20260117
  Serious: Yes (Hospitalization)
  Sender: ZYDUS PHARM
  Company Number: None

PATIENT

DRUGS (3)
  1. ACETAMINOPHEN [Suspect]
     Active Substance: ACETAMINOPHEN
     Indication: Sleep disorder
     Dosage: UNK
     Route: 048
     Dates: start: 20251003, end: 20251003
  2. CODEINE [Suspect]
     Active Substance: CODEINE
     Indication: Sleep disorder
     Dosage: UNK
     Route: 048
     Dates: start: 20251003, end: 20251003
  3. DOXYLAMINE SUCCINATE [Suspect]
     Active Substance: DOXYLAMINE SUCCINATE
     Indication: Sleep disorder
     Dosage: UNK
     Route: 048
     Dates: start: 20251003, end: 20251003

REACTIONS (1)
  - Coma [Recovered/Resolved]

NARRATIVE: CASE EVENT DATE: 20251003
